FAERS Safety Report 11722427 (Version 18)
Quarter: 2019Q1

REPORT INFORMATION
  Report Type: Spontaneous
  Country: US (occurrence: US)
  Receive Date: 20151111
  Receipt Date: 20190322
  Transmission Date: 20190417
  Serious: Yes (Hospitalization, Congenital Anomaly, Other)
  Sender: FDA-Public Use
  Company Number: PHEH2015US022864

PATIENT
  Sex: Female

DRUGS (5)
  1. ONDANSETRON [Suspect]
     Active Substance: ONDANSETRON
     Indication: FOETAL EXPOSURE DURING PREGNANCY
     Route: 064
  2. ONDANSETRON HYDROCHLORIDE. [Suspect]
     Active Substance: ONDANSETRON HYDROCHLORIDE
     Indication: FOETAL EXPOSURE DURING PREGNANCY
     Dosage: MOTHER^S DOSE: 8 MG, UNK
     Route: 064
  3. ZOFRAN [Suspect]
     Active Substance: ONDANSETRON HYDROCHLORIDE
     Indication: FOETAL EXPOSURE DURING PREGNANCY
     Dosage: MOTHER^S DOSE: 8 MG, UNK
     Route: 064
  4. ZOFRAN ODT [Suspect]
     Active Substance: ONDANSETRON HYDROCHLORIDE
     Indication: FOETAL EXPOSURE DURING PREGNANCY
     Dosage: MOTHER^S DOSE: 8 MG, TID
     Route: 064
  5. ONDANSETRON [Suspect]
     Active Substance: ONDANSETRON
     Indication: FOETAL EXPOSURE DURING PREGNANCY
     Dosage: MOTHER^S DOSE: 08 MG, BID
     Route: 064

REACTIONS (38)
  - Multiple congenital abnormalities [Unknown]
  - Hypoplastic right heart syndrome [Unknown]
  - Cleft palate [Unknown]
  - Pyelocaliectasis [Unknown]
  - Congenital cystic kidney disease [Unknown]
  - Pyrexia [Unknown]
  - Neonatal asphyxia [Unknown]
  - Craniofacial deformity [Unknown]
  - Meningitis bacterial [Unknown]
  - Cardiac murmur [Unknown]
  - Oral candidiasis [Unknown]
  - Congenital hydronephrosis [Unknown]
  - Otitis media chronic [Unknown]
  - Pain [Unknown]
  - Scar [Unknown]
  - Heart disease congenital [Unknown]
  - Transposition of the great vessels [Unknown]
  - Talipes [Unknown]
  - Hypoplastic left heart syndrome [Unknown]
  - Injury [Unknown]
  - Anxiety [Unknown]
  - Pelvi-ureteric obstruction [Unknown]
  - Developmental hip dysplasia [Unknown]
  - Respiratory syncytial virus infection [Unknown]
  - Bronchiolitis [Unknown]
  - Neonatal infection [Unknown]
  - Sepsis [Unknown]
  - Emotional distress [Unknown]
  - Congenital anomaly [Unknown]
  - Urinary tract malformation [Unknown]
  - Hypoxia [Unknown]
  - Choking [Unknown]
  - Anhedonia [Unknown]
  - Dehydration [Unknown]
  - Renal vessel congenital anomaly [Unknown]
  - Deafness [Unknown]
  - Foetal exposure during pregnancy [Unknown]
  - Upper respiratory tract infection [Unknown]
